FAERS Safety Report 6192567-0 (Version None)
Quarter: 2009Q2

REPORT INFORMATION
  Report Type: 
  Country: None (occurrence: None)
  Receive Date: 20090518
  Receipt Date: 20090512
  Transmission Date: 20091009
  Serious: Yes (Death)
  Sender: FDA-Public Use
  Company Number: JP-JNJFOC-20090503112

PATIENT
  Sex: Male
  Weight: 48 kg

DRUGS (11)
  1. DUROTEP MT PATCH [Suspect]
     Route: 062
  2. DUROTEP MT PATCH [Suspect]
     Indication: CANCER PAIN
     Route: 062
  3. TAPENTADOL HYDROCHLORIDE [Suspect]
     Indication: CANCER PAIN
     Route: 048
  4. NORVASC [Concomitant]
     Indication: HYPERTENSION
     Route: 048
  5. LOSARTAN POTASSIUM [Concomitant]
     Indication: HYPERTENSION
     Route: 048
  6. DEXART [Concomitant]
     Indication: OESOPHAGEAL CARCINOMA
     Route: 042
  7. ISOTONIC SODIUM CHLORIDE [Concomitant]
     Indication: MEDICATION DILUTION
     Route: 042
  8. LASIX [Concomitant]
     Indication: OEDEMA PERIPHERAL
     Route: 042
  9. MANGANESE CHLORIDE-ZINC SULFATE COMBINED DRUG [Concomitant]
     Indication: FLUID REPLACEMENT
     Route: 042
  10. FULCALIQ 1 [Concomitant]
     Indication: FLUID REPLACEMENT
     Route: 042
  11. DOPAMINE HYDROCHLORIDE [Concomitant]
     Indication: SHOCK
     Route: 042

REACTIONS (5)
  - ASPIRATION [None]
  - CONSTIPATION [None]
  - MALAISE [None]
  - RESPIRATORY ARREST [None]
  - VOMITING [None]
